FAERS Safety Report 14482469 (Version 9)
Quarter: 2018Q3

REPORT INFORMATION
  Report Type: Spontaneous
  Country: CA (occurrence: CA)
  Receive Date: 20180202
  Receipt Date: 20180820
  Transmission Date: 20181010
  Serious: Yes (Life-Threatening, Hospitalization, Other)
  Sender: FDA-Public Use
  Company Number: CA-BEH-2018087219

PATIENT
  Age: 40 Year
  Sex: Female
  Weight: 76.64 kg

DRUGS (14)
  1. HIZENTRA [Suspect]
     Active Substance: HUMAN IMMUNOGLOBULIN G
     Dosage: 12 G, QMT
     Route: 065
     Dates: start: 201604
  2. PREDNISONE. [Concomitant]
     Active Substance: PREDNISONE
     Indication: INFUSION RELATED REACTION
     Dosage: 150 MG, QW
     Route: 065
  3. IRON                               /00023503/ [Concomitant]
     Active Substance: IRON
     Indication: BLOOD IRON DECREASED
  4. HIZENTRA [Suspect]
     Active Substance: HUMAN IMMUNOGLOBULIN G
     Dosage: 8 G, UNK
     Route: 065
     Dates: start: 20180111, end: 20180114
  5. PREDNISONE. [Concomitant]
     Active Substance: PREDNISONE
     Indication: PROPHYLAXIS
     Dosage: 9 MG, OD
     Route: 065
  6. SOLU?MEDROL [Concomitant]
     Active Substance: METHYLPREDNISOLONE SODIUM SUCCINATE
     Indication: PRODUCT USED FOR UNKNOWN INDICATION
     Route: 042
  7. TAZOCIN [Concomitant]
     Active Substance: PIPERACILLIN SODIUM\TAZOBACTAM SODIUM
     Indication: PRODUCT USED FOR UNKNOWN INDICATION
     Route: 065
  8. HIZENTRA [Suspect]
     Active Substance: HUMAN IMMUNOGLOBULIN G
     Dosage: UNK
     Route: 058
     Dates: start: 20171220
  9. BENADRYL [Concomitant]
     Active Substance: DIPHENHYDRAMINE HYDROCHLORIDE
     Indication: INFUSION RELATED REACTION
  10. BENADRYL [Concomitant]
     Active Substance: DIPHENHYDRAMINE HYDROCHLORIDE
     Indication: PROPHYLAXIS
     Dosage: 50 MG, QW
     Route: 065
  11. HIZENTRA [Suspect]
     Active Substance: HUMAN IMMUNOGLOBULIN G
     Indication: HYPOGAMMAGLOBULINAEMIA
     Dosage: 4 G, TIW
     Route: 058
     Dates: start: 20120106
  12. VORICONAZOLE. [Concomitant]
     Active Substance: VORICONAZOLE
     Indication: PRODUCT USED FOR UNKNOWN INDICATION
     Route: 065
  13. HIZENTRA [Suspect]
     Active Substance: HUMAN IMMUNOGLOBULIN G
     Dosage: UNK
     Route: 058
     Dates: start: 20171106, end: 20171220
  14. IRON                               /00023503/ [Concomitant]
     Active Substance: IRON
     Indication: MALABSORPTION
     Route: 042

REACTIONS (19)
  - Bronchitis bacterial [Recovering/Resolving]
  - Pyrexia [Recovering/Resolving]
  - Bronchitis [Unknown]
  - General physical health deterioration [Recovering/Resolving]
  - Stress [Not Recovered/Not Resolved]
  - Bronchitis fungal [Recovering/Resolving]
  - Pneumonia streptococcal [Recovering/Resolving]
  - Influenza like illness [Recovering/Resolving]
  - Blood immunoglobulin G decreased [Recovering/Resolving]
  - Pneumonia [Unknown]
  - Pneumonia haemophilus [Recovering/Resolving]
  - Drug ineffective [Recovering/Resolving]
  - Intensive care unit acquired weakness [Recovering/Resolving]
  - Acute respiratory distress syndrome [Unknown]
  - Vomiting [Recovering/Resolving]
  - Impaired work ability [Recovering/Resolving]
  - Pneumonia pneumococcal [Unknown]
  - Nausea [Recovering/Resolving]
  - Oxygen saturation decreased [Recovering/Resolving]

NARRATIVE: CASE EVENT DATE: 201711
